FAERS Safety Report 23385862 (Version 2)
Quarter: 2024Q1

REPORT INFORMATION
  Report Type: Report from Study
  Country: US (occurrence: US)
  Receive Date: 20240110
  Receipt Date: 20240220
  Transmission Date: 20240410
  Serious: No
  Sender: FDA-Public Use
  Company Number: US-DECIPHERA PHARMACEUTICALS LLC-2024US000004

PATIENT
  Age: 67 Year
  Sex: Female

DRUGS (3)
  1. QINLOCK [Suspect]
     Active Substance: RIPRETINIB
     Indication: Gastrointestinal stromal tumour
     Dosage: 150 MILLIGRAM, QD
     Route: 048
     Dates: start: 20231208
  2. OMEPRAZOLE [Concomitant]
     Active Substance: OMEPRAZOLE
     Indication: Product used for unknown indication
     Dosage: UNK
  3. ONDANSETRON [Concomitant]
     Active Substance: ONDANSETRON
     Indication: Product used for unknown indication
     Dosage: UNK

REACTIONS (9)
  - Paraesthesia [Unknown]
  - Burning sensation [Unknown]
  - Peripheral swelling [Unknown]
  - Erythema [Unknown]
  - Blood pressure increased [Unknown]
  - Abdominal pain [Unknown]
  - Alopecia [Unknown]
  - Skin lesion [Unknown]
  - Back pain [Unknown]
